FAERS Safety Report 9123043 (Version 2)
Quarter: 2015Q2

REPORT INFORMATION
  Report Type: Spontaneous
  Country: CN (occurrence: CN)
  Receive Date: 20130115
  Receipt Date: 20150417
  Transmission Date: 20150821
  Serious: Yes (Other)
  Sender: FDA-Public Use
  Company Number: CN-ROCHE-1177975

PATIENT
  Age: 65 Year
  Sex: Female

DRUGS (5)
  1. VITAMIN B6 [Concomitant]
     Active Substance: PYRIDOXINE HYDROCHLORIDE
     Indication: RECTAL CANCER
     Route: 048
     Dates: start: 201212
  2. XELODA [Suspect]
     Active Substance: CAPECITABINE
     Dosage: 1000MG IN THE MORNING AND 1500MG IN THE EVENING
     Route: 048
  3. XELODA [Suspect]
     Active Substance: CAPECITABINE
     Route: 048
  4. AVASTIN [Suspect]
     Active Substance: BEVACIZUMAB
     Indication: RECTAL CANCER
     Dosage: 100 MG/4ML
     Route: 042
     Dates: start: 201205, end: 201503
  5. XELODA [Suspect]
     Active Substance: CAPECITABINE
     Indication: RECTAL CANCER
     Route: 048
     Dates: start: 201211

REACTIONS (9)
  - Erythema [Not Recovered/Not Resolved]
  - Pain in extremity [Not Recovered/Not Resolved]
  - Proteinuria [Recovering/Resolving]
  - Face oedema [Not Recovered/Not Resolved]
  - Hypoaesthesia [Not Recovered/Not Resolved]
  - Peripheral swelling [Not Recovered/Not Resolved]
  - Neoplasm [Not Recovered/Not Resolved]
  - Oedema peripheral [Not Recovered/Not Resolved]
  - Metastases to lung [Unknown]

NARRATIVE: CASE EVENT DATE: 20150121
